FAERS Safety Report 6878684-8 (Version None)
Quarter: 2010Q3

REPORT INFORMATION
  Report Type: 
  Country: None (occurrence: None)
  Receive Date: 20100728
  Receipt Date: 20100719
  Transmission Date: 20110219
  Serious: Yes (Hospitalization)
  Sender: FDA-Public Use
  Company Number: B0665703A

PATIENT
  Sex: Female
  Weight: 59.6 kg

DRUGS (9)
  1. LAPATINIB [Suspect]
     Indication: BREAST CANCER
     Dosage: 1000MG PER DAY
     Route: 048
     Dates: start: 20100421
  2. PACLITAXEL [Suspect]
     Indication: BREAST CANCER
     Dosage: 80MGM2 WEEKLY
     Route: 042
     Dates: start: 20100421
  3. TRASTUZUMAB [Suspect]
     Indication: BREAST CANCER
     Dosage: 2MGK WEEKLY
     Route: 042
     Dates: start: 20100421
  4. MITIL [Concomitant]
     Indication: GASTROENTERITIS
     Dosage: 2TAB AS REQUIRED
     Route: 048
     Dates: start: 20100705
  5. STILPANE [Concomitant]
     Indication: GASTROENTERITIS
     Dosage: 2TAB AS REQUIRED
     Route: 048
     Dates: start: 20100705
  6. PROCTOSEDYL [Concomitant]
     Route: 054
     Dates: start: 20100630
  7. BACTROBAN [Concomitant]
     Indication: FOLLICULITIS
     Route: 061
     Dates: start: 20100617
  8. LOMOTIL [Concomitant]
     Dosage: 2TAB AS REQUIRED
     Route: 048
     Dates: start: 20100614
  9. LOPERAMIDE [Concomitant]
     Route: 048
     Dates: start: 20100516

REACTIONS (9)
  - ABDOMINAL PAIN [None]
  - DEHYDRATION [None]
  - DIARRHOEA [None]
  - GASTROENTERITIS [None]
  - HYPOKALAEMIA [None]
  - HYPONATRAEMIA [None]
  - NAUSEA [None]
  - PYREXIA [None]
  - VOMITING [None]
